FAERS Safety Report 7849973-5 (Version None)
Quarter: 2011Q4

REPORT INFORMATION
  Report Type: 
  Country: None (occurrence: None)
  Receive Date: 20111025
  Receipt Date: 20111025
  Transmission Date: 20120403
  Serious: Yes (Hospitalization)
  Sender: FDA-Public Use
  Company Number: None

PATIENT
  Age: 87 Year
  Sex: Male
  Weight: 67.3 kg

DRUGS (2)
  1. PERPHENAZINE [Suspect]
     Indication: DEMENTIA
     Dosage: 2 MG HS PO
     Route: 048
     Dates: start: 20090409, end: 20111003
  2. CITALOPRAM HYDROBROMIDE [Suspect]
     Indication: DEPRESSION
     Dosage: 30 MG EVERY DAY PO
     Route: 048
     Dates: start: 20080603

REACTIONS (6)
  - FALL [None]
  - HEAD INJURY [None]
  - CHEST INJURY [None]
  - EXCORIATION [None]
  - CONFUSIONAL STATE [None]
  - HALLUCINATION [None]
